FAERS Safety Report 7100895-7 (Version None)
Quarter: 2010Q4

REPORT INFORMATION
  Report Type: 
  Country: None (occurrence: None)
  Receive Date: 20101113
  Receipt Date: 20100326
  Transmission Date: 20110411
  Serious: No
  Sender: FDA-Public Use
  Company Number: US-ALLERGAN-1004113US

PATIENT
  Age: 48 Year
  Sex: Female

DRUGS (1)
  1. BOTOX COSMETIC [Suspect]
     Indication: SKIN WRINKLING
     Dosage: UNK
     Dates: start: 20100315, end: 20100315

REACTIONS (5)
  - DRY SKIN [None]
  - EYELID OEDEMA [None]
  - OCULAR HYPERAEMIA [None]
  - SCAB [None]
  - VISION BLURRED [None]
